FAERS Safety Report 9568258 (Version 2)
Quarter: 2016Q1

REPORT INFORMATION
  Report Type: Report from Study
  Country: US (occurrence: US)
  Receive Date: 20130930
  Receipt Date: 20160210
  Transmission Date: 20160526
  Serious: No
  Sender: FDA-Public Use
  Company Number: US-AMGEN-USASP2013051601

PATIENT
  Age: 63 Year
  Sex: Female

DRUGS (10)
  1. ENBREL [Suspect]
     Active Substance: ETANERCEPT
     Indication: RHEUMATOID ARTHRITIS
     Dosage: 50 MG, QWK
     Route: 065
     Dates: start: 2013
  2. ENBREL [Suspect]
     Active Substance: ETANERCEPT
     Indication: FIBROMYALGIA
  3. PREDNISONE. [Concomitant]
     Active Substance: PREDNISONE
     Indication: PAIN IN EXTREMITY
  4. PREDNISONE. [Concomitant]
     Active Substance: PREDNISONE
     Indication: ACTIVITIES OF DAILY LIVING IMPAIRED
  5. PREDNISONE. [Concomitant]
     Active Substance: PREDNISONE
     Indication: ARTHRALGIA
  6. PREDNISONE. [Concomitant]
     Active Substance: PREDNISONE
     Indication: LIMB DISCOMFORT
     Dosage: UNK MG AS NEEDED;  HAS TAKEN ABOUT 2 YEARS
  7. PREDNISONE. [Concomitant]
     Active Substance: PREDNISONE
     Indication: MOBILITY DECREASED
  8. METHOTREXATE [Concomitant]
     Active Substance: METHOTREXATE
     Dosage: 20 MG, QWK, FOR 2 YEARS
     Route: 048
  9. PREDNISONE. [Concomitant]
     Active Substance: PREDNISONE
     Indication: MUSCULOSKELETAL DISCOMFORT
  10. PREDNISONE. [Concomitant]
     Active Substance: PREDNISONE
     Indication: JOINT RANGE OF MOTION DECREASED

REACTIONS (14)
  - Arthralgia [Unknown]
  - Injection site mass [Unknown]
  - Pain in extremity [Unknown]
  - Mobility decreased [Unknown]
  - Injection site warmth [Not Recovered/Not Resolved]
  - Activities of daily living impaired [Unknown]
  - Device issue [Unknown]
  - Crying [Unknown]
  - Joint range of motion decreased [Unknown]
  - Injection site pruritus [Not Recovered/Not Resolved]
  - Injection site pain [Not Recovered/Not Resolved]
  - Back pain [Not Recovered/Not Resolved]
  - Musculoskeletal disorder [Unknown]
  - Injection site erythema [Not Recovered/Not Resolved]

NARRATIVE: CASE EVENT DATE: 201304
